FAERS Safety Report 5899272-6 (Version None)
Quarter: 2008Q3

REPORT INFORMATION
  Report Type: 
  Country: None (occurrence: None)
  Receive Date: 20080925
  Receipt Date: 20080923
  Transmission Date: 20090109
  Serious: Yes (Disabling)
  Sender: FDA-Public Use
  Company Number: IT-ABBOTT-06P-083-0340206-00

PATIENT
  Sex: Female

DRUGS (2)
  1. FULCRO [Suspect]
     Indication: METABOLIC SYNDROME
     Route: 048
     Dates: start: 20021010, end: 20031101
  2. ZESTORETIC [Concomitant]
     Indication: DRUG USE FOR UNKNOWN INDICATION

REACTIONS (12)
  - ANAEMIA [None]
  - ARTHRALGIA [None]
  - BALANCE DISORDER [None]
  - DIZZINESS [None]
  - GASTROINTESTINAL DISORDER [None]
  - MUSCLE RIGIDITY [None]
  - MYALGIA [None]
  - OEDEMA PERIPHERAL [None]
  - PARAESTHESIA [None]
  - POLYNEUROPATHY [None]
  - PURPURA [None]
  - SKIN DISORDER [None]
